FAERS Safety Report 7999045-4 (Version None)
Quarter: 2011Q4

REPORT INFORMATION
  Report Type: 
  Country: None (occurrence: None)
  Receive Date: 20111215
  Receipt Date: 20111205
  Transmission Date: 20120403
  Serious: Yes (Hospitalization)
  Sender: FDA-Public Use
  Company Number: MYVW-PR-1111S-0161

PATIENT
  Age: 53 Year
  Sex: Female

DRUGS (4)
  1. MORPHINE [Suspect]
     Indication: PRODUCT USED FOR UNKNOWN INDICATION
     Dates: start: 20111119, end: 20111119
  2. MYOVIEW [Suspect]
     Indication: ABDOMINAL PAIN UPPER
     Dosage: 814 MBQ, SINGLE DOSE
     Dates: start: 20111119, end: 20111119
  3. BENADRYL [Suspect]
     Indication: PRURITUS
     Dates: start: 20111119, end: 20111119
  4. TECHNETIUM (TC99M) GENERATOR (MANF. UNKNOWN) (SODIUM PERTECHNETATE TC9 [Concomitant]

REACTIONS (5)
  - APHASIA [None]
  - HYPERSENSITIVITY [None]
  - CONFUSIONAL STATE [None]
  - AGITATION [None]
  - PANIC DISORDER [None]
